FAERS Safety Report 15524055 (Version 5)
Quarter: 2019Q1

REPORT INFORMATION
  Report Type: Report from Study
  Country: FR (occurrence: FR)
  Receive Date: 20181018
  Receipt Date: 20190326
  Transmission Date: 20190417
  Serious: Yes (Hospitalization)
  Sender: FDA-Public Use
  Company Number: FR-ROCHE-2171369

PATIENT
  Age: 78 Year
  Sex: Female

DRUGS (11)
  1. DOCETAXEL. [Suspect]
     Active Substance: DOCETAXEL
     Indication: ANAL SQUAMOUS CELL CARCINOMA
     Dosage: DOSE: 60 MG?LAST DOSE (60 MG)ADMINISTERED PRIOR TO EVENT WAS ON 18/OCT/2018?LAST DOSE (60 MG)ADMINIS
     Route: 065
     Dates: start: 20180801
  2. BISOCE [Concomitant]
     Active Substance: BISOPROLOL
     Route: 065
  3. LASILIX [Concomitant]
     Active Substance: FUROSEMIDE
     Dosage: 40 MG/L
     Route: 065
  4. ATEZOLIZUMAB. [Suspect]
     Active Substance: ATEZOLIZUMAB
     Indication: ANAL SQUAMOUS CELL CARCINOMA
     Dosage: 780MG?LAST DOSE (800 MG)ADMINISTERED PRIOR TO EVENT WAS ON 18/OCT/2018?LAST DOSE (800 MG)ADMINISTERE
     Route: 065
     Dates: start: 20180801
  5. 5-FU [Suspect]
     Active Substance: FLUOROURACIL
     Indication: ANAL SQUAMOUS CELL CARCINOMA
     Dosage: PROTOCOL DOSE: 3550MG?LAST DOSE (3550 MG)ADMINISTERED PRIOR TO EVENT WAS ON 18/OCT/2018?LAST DOSE (3
     Route: 065
     Dates: start: 20180801
  6. CISPLATINE [Suspect]
     Active Substance: CISPLATIN
     Indication: ANAL SQUAMOUS CELL CARCINOMA
     Dosage: 59 MG
     Route: 065
     Dates: start: 20180802
  7. RAMIPRIL. [Concomitant]
     Active Substance: RAMIPRIL
     Route: 065
  8. LOVENOX [Concomitant]
     Active Substance: ENOXAPARIN SODIUM
     Dosage: 0.4 ML X 2/J
     Route: 065
  9. PRAVASTATIN. [Concomitant]
     Active Substance: PRAVASTATIN
     Dosage: 20 MG/L
     Route: 065
  10. KARDEGIC [Concomitant]
     Active Substance: ASPIRIN DL-LYSINE
     Dosage: 75 MG/L
     Route: 065
  11. TITANOREIN [Concomitant]

REACTIONS (8)
  - Device related infection [Recovered/Resolved]
  - Chills [Recovered/Resolved]
  - Renal failure [Recovered/Resolved]
  - Hyponatraemia [Not Recovered/Not Resolved]
  - Pneumonia [Recovered/Resolved]
  - Melaena [Recovered/Resolved]
  - Renal failure [Not Recovered/Not Resolved]
  - Hyperkalaemia [Not Recovered/Not Resolved]

NARRATIVE: CASE EVENT DATE: 20180812
